FAERS Safety Report 24827704 (Version 1)
Quarter: 2025Q1

REPORT INFORMATION
  Report Type: Spontaneous
  Country: CH (occurrence: CH)
  Receive Date: 20250109
  Receipt Date: 20250109
  Transmission Date: 20250409
  Serious: No
  Sender: JAZZ
  Company Number: CH-PHARMAMAR-2024PM000515

PATIENT
  Age: 54 Year
  Sex: Male

DRUGS (2)
  1. ZEPZELCA [Suspect]
     Active Substance: LURBINECTEDIN
     Indication: Peritoneal mesothelioma malignant
     Route: 042
     Dates: start: 20240705
  2. OPIUM [Concomitant]
     Active Substance: OPIUM
     Indication: Abdominal pain

REACTIONS (8)
  - Fatigue [Recovering/Resolving]
  - Nausea [Unknown]
  - Aspartate aminotransferase increased [Recovering/Resolving]
  - Alanine aminotransferase increased [Recovering/Resolving]
  - Blood alkaline phosphatase increased [Recovering/Resolving]
  - Gamma-glutamyltransferase increased [Recovering/Resolving]
  - Off label use [Unknown]
  - Product use in unapproved indication [Unknown]

NARRATIVE: CASE EVENT DATE: 20240705
